FAERS Safety Report 11056241 (Version 1)
Quarter: 2015Q2

REPORT INFORMATION
  Report Type: Spontaneous
  Country: US (occurrence: US)
  Receive Date: 20150422
  Receipt Date: 20150422
  Transmission Date: 20150821
  Serious: Yes (Death)
  Sender: FDA-Public Use
  Company Number: US-ASTELLAS-2015US013344

PATIENT
  Sex: Female

DRUGS (1)
  1. TARCEVA [Suspect]
     Active Substance: ERLOTINIB HYDROCHLORIDE
     Indication: LUNG NEOPLASM MALIGNANT
     Dosage: 150 MG,1 TABLET BY MOUTH EVERY DAY ON AN EMPTY STOMACH 1HR BEFORE OR 2HRS AFTER A MEAL
     Route: 048
     Dates: start: 20150102

REACTIONS (1)
  - Death [Fatal]
